FAERS Safety Report 10152604 (Version 3)
Quarter: 2014Q2

REPORT INFORMATION
  Report Type: Spontaneous
  Country: US (occurrence: US)
  Receive Date: 20140505
  Receipt Date: 20140617
  Transmission Date: 20141212
  Serious: Yes (Hospitalization)
  Sender: FDA-Public Use
  Company Number: US-BEH-2013035509

PATIENT
  Age: 26 Year
  Sex: Female
  Weight: 69 kg

DRUGS (11)
  1. BERINERT [Suspect]
     Indication: HEREDITARY ANGIOEDEMA
     Dosage: RATE OF 4ML/MIN
     Route: 042
  2. BERINERT [Suspect]
     Indication: ENZYME ABNORMALITY
     Dosage: RATE OF 4ML/MIN
     Route: 042
  3. BERINERT [Suspect]
     Dosage: 4 ML/MIN.
     Route: 042
  4. BERINERT [Suspect]
     Dosage: 4 ML PER MINUTE
     Route: 042
  5. SODIUM CHLORIDE [Concomitant]
  6. EPI-PEN [Concomitant]
  7. DEPO-PROVERA [Concomitant]
     Dosage: 150 MG/ML
  8. ZOFRAN [Concomitant]
  9. NEXIUM [Concomitant]
  10. PERCOCET [Concomitant]
     Dosage: 5-325 MG
  11. LIALDA [Concomitant]

REACTIONS (6)
  - Pancreatitis [Unknown]
  - Hereditary angioedema [Unknown]
  - Pancreatitis [Unknown]
  - Pancreatitis [Unknown]
  - Hereditary angioedema [Unknown]
  - Pancreatitis [Unknown]
